FAERS Safety Report 12566628 (Version 1)
Quarter: 2016Q3

REPORT INFORMATION
  Report Type: Spontaneous
  Country: US (occurrence: US)
  Receive Date: 20160718
  Receipt Date: 20160718
  Transmission Date: 20161109
  Serious: No
  Sender: FDA-Public Use
  Company Number: US-TRIS PHARMA, INC.-1055195

PATIENT
  Age: 11 Year
  Sex: Female
  Weight: 43.18 kg

DRUGS (1)
  1. DEXTROMETHORPHAN POLISTIREX ER OS 6 MG/ML [Suspect]
     Active Substance: DEXTROMETHORPHAN HYDROBROMIDE
     Indication: COUGH
     Route: 048

REACTIONS (2)
  - Rhinitis [None]
  - Drug ineffective [None]

NARRATIVE: CASE EVENT DATE: 20151209
